APPROVED DRUG PRODUCT: LIVMARLI
Active Ingredient: MARALIXIBAT CHLORIDE
Strength: EQ 10MG BASE
Dosage Form/Route: TABLET;ORAL
Application: N219485 | Product #001
Applicant: MIRUM PHARMACEUTICALS INC
Approved: Apr 10, 2025 | RLD: Yes | RS: No | Type: RX

PATENTS:
Patent 11497745 | Expires: Feb 12, 2040
Patent 11376251 | Expires: Oct 26, 2032
Patent 11260053 | Expires: May 26, 2031
Patent 11229661 | Expires: Oct 26, 2032
Patent 11229647 | Expires: Feb 12, 2040
Patent 10512657 | Expires: Oct 26, 2032
Patent 12296050 | Expires: Oct 5, 2043
Patent 12296050 | Expires: Oct 5, 2043
Patent 12350267 | Expires: Oct 26, 2032

EXCLUSIVITY:
Code: I-938 | Date: Mar 13, 2027
Code: NCE | Date: Sep 29, 2026